FAERS Safety Report 7519607-8 (Version None)
Quarter: 2011Q2

REPORT INFORMATION
  Report Type: 
  Country: None (occurrence: None)
  Receive Date: 20110602
  Receipt Date: 20101214
  Transmission Date: 20111010
  Serious: Yes (Other)
  Sender: FDA-Public Use
  Company Number: A0900211A

PATIENT
  Age: 7 Year
  Sex: Female
  Weight: 26.4 kg

DRUGS (5)
  1. ADVAIR DISKUS 100/50 [Concomitant]
     Indication: ASTHMA
     Route: 055
     Dates: start: 20091123, end: 20101201
  2. ZYRTEC [Concomitant]
  3. VENTOLIN [Concomitant]
     Indication: ASTHMA
     Route: 055
     Dates: start: 20090827
  4. VERAMYST [Suspect]
     Route: 065
  5. SINGULAIR [Concomitant]

REACTIONS (5)
  - EYE PAIN [None]
  - ASTHENOPIA [None]
  - PHOTOPHOBIA [None]
  - VISION BLURRED [None]
  - CATARACT [None]
